FAERS Safety Report 10561827 (Version 2)
Quarter: 2015Q1

REPORT INFORMATION
  Report Type: Report from Study
  Country: AU (occurrence: AU)
  Receive Date: 20141104
  Receipt Date: 20150101
  Transmission Date: 20150720
  Serious: Yes (Hospitalization)
  Sender: FDA-Public Use
  Company Number: AU-AMGEN-AUSCT2014083404

PATIENT
  Age: 67 Year
  Sex: Female

DRUGS (29)
  1. CLARITHROMYCIN. [Concomitant]
     Active Substance: CLARITHROMYCIN
     Indication: UPPER RESPIRATORY TRACT INFECTION
     Dosage: 250 MUG, BID
     Route: 048
  2. FLU [Concomitant]
     Active Substance: INFLUENZA VIRUS VACCINE
     Indication: ANTIVIRAL PROPHYLAXIS
     Dosage: 1 DF, ONE TIME DOSE
     Route: 030
  3. PANTOPRAZOLE [Concomitant]
     Active Substance: PANTOPRAZOLE SODIUM
     Indication: PEPTIC ULCER
     Dosage: 40 MG, QD
     Route: 048
  4. ENDEP [Concomitant]
     Active Substance: AMITRIPTYLINE HYDROCHLORIDE
     Indication: URINARY INCONTINENCE
     Dosage: 10 MG, QHS
     Route: 048
  5. BOTOX [Concomitant]
     Active Substance: ONABOTULINUMTOXINA
     Indication: MUSCLE SPASMS
     Dosage: UNK UNK, QD
     Route: 030
  6. VASICARE [Concomitant]
     Indication: URINARY INCONTINENCE
     Dosage: 10 MG, QD
     Route: 048
  7. MIRABEGRON [Concomitant]
     Active Substance: MIRABEGRON
     Indication: URINARY INCONTINENCE
     Dosage: UNK
  8. PENICILLIN                         /00000901/ [Concomitant]
     Active Substance: PENICILLIN
     Indication: UPPER RESPIRATORY TRACT INFECTION
     Dosage: 500 MG, TID
     Route: 048
  9. CEPHALEXIN                         /00145501/ [Concomitant]
     Active Substance: CEPHALEXIN
     Indication: LACERATION
     Dosage: 500 MG, QID
     Route: 048
  10. SENNA [Concomitant]
     Active Substance: SENNA LEAF\SENNOSIDES\SENNOSIDES A AND B
     Indication: CONSTIPATION
     Dosage: 1 DF, AS NECESSARY
     Route: 048
  11. CILOXAN [Concomitant]
     Active Substance: CIPROFLOXACIN HYDROCHLORIDE
     Indication: CATARACT OPERATION COMPLICATION
     Dosage: 1 DROP, QD
     Route: 047
  12. OXYTROL [Concomitant]
     Active Substance: OXYBUTYNIN
     Indication: URINARY INCONTINENCE
     Dosage: 36 MG, BID
     Route: 062
  13. LIGNOCAINE                         /00033401/ [Concomitant]
     Active Substance: LIDOCAINE HYDROCHLORIDE
     Indication: TENDONITIS
     Dosage: 1 %, QD
  14. LYRICA [Concomitant]
     Active Substance: PREGABALIN
     Indication: PAIN
     Dosage: 25 MG, TID
     Route: 048
  15. MAGNESIUM [Concomitant]
     Active Substance: MAGNESIUM
     Indication: MUSCLE SPASMS
     Dosage: 500 MG, BID
     Route: 048
  16. CALTRATE WITH VITAMIN D [Concomitant]
     Active Substance: CALCIUM CARBONATE\VITAMIN D
     Indication: SUPPLEMENTATION THERAPY
     Dosage: 1 DF, QD
     Route: 048
  17. PREDNEFRIN                         /00016204/ [Concomitant]
     Indication: CATARACT OPERATION COMPLICATION
     Dosage: 1 DROP, QD
     Route: 047
  18. ASPIRIN                            /00002701/ [Concomitant]
     Active Substance: ASPIRIN
     Indication: RADIATION MYELOPATHY
     Dosage: 100 MG, QD
     Route: 048
  19. DENOSUMAB [Suspect]
     Active Substance: DENOSUMAB
     Indication: BONE GIANT CELL TUMOUR
     Dosage: 120 MG, 4/52
     Route: 058
     Dates: start: 20061115
  20. SALBUTAMOL [Concomitant]
     Active Substance: ALBUTEROL
     Indication: BRONCHOSPASM
     Dosage: 2 PUFFS, AS NECESSARY
  21. NEUROFEN [Concomitant]
     Active Substance: IBUPROFEN
     Indication: BACK PAIN
     Dosage: 1 TEASPOON, AS NECESSARY
     Route: 061
  22. ONDANSETRON [Concomitant]
     Active Substance: ONDANSETRON
     Indication: HAEMATEMESIS
     Dosage: 4 MG, QD
     Route: 042
  23. OSTELIN VITAMIN D [Concomitant]
     Indication: SUPPLEMENTATION THERAPY
     Dosage: 1 DF, QD
     Route: 048
  24. PARACETAMOL [Concomitant]
     Active Substance: ACETAMINOPHEN
     Indication: ANALGESIC THERAPY
     Dosage: 2 DF, AS NECESSARY
     Route: 048
  25. AUGMENTIN DUO [Concomitant]
     Active Substance: AMOXICILLIN\CLAVULANATE POTASSIUM
     Indication: URINARY TRACT INFECTION
     Dosage: 1 DF, BID
     Route: 048
  26. VAGIFEM [Concomitant]
     Active Substance: ESTRADIOL
     Indication: PROPHYLAXIS
     Dosage: 25 MUG, BID
     Route: 067
  27. CELESTONE [Concomitant]
     Active Substance: BETAMETHASONE
     Indication: TENDONITIS
     Dosage: 5.7 MG, QD
  28. PANADOL [Concomitant]
     Active Substance: ACETAMINOPHEN
     Indication: MUSCLE SPASMS
     Dosage: 1330 MG, QHS
     Route: 048
  29. KRILL OIL [Concomitant]
     Active Substance: DIETARY SUPPLEMENT
     Indication: MUSCLE SPASMS
     Dosage: UNK UNK, QD
     Route: 048

REACTIONS (1)
  - Urinary tract infection [Recovered/Resolved]

NARRATIVE: CASE EVENT DATE: 20141022
